FAERS Safety Report 4593394-8 (Version None)
Quarter: 2005Q1

REPORT INFORMATION
  Report Type: 
  Country: None (occurrence: None)
  Receive Date: 20050224
  Receipt Date: 20040602
  Transmission Date: 20050727
  Serious: No
  Sender: FDA-Public Use
  Company Number: US-BRISTOL-MYERS SQUIBB COMPANY-12606141

PATIENT
  Age: 40 Year
  Sex: Female
  Weight: 70 kg

DRUGS (1)
  1. EXCEDRIN (MIGRAINE) [Suspect]
     Indication: MIGRAINE
     Dosage: DOSAGE: 2 TABLETS EVERY 2 TO 4 HOURS ORALLY THROUGHOUT THE DAY, EVERY OTHER DAY.
     Route: 048

REACTIONS (1)
  - DRUG INEFFECTIVE [None]
